FAERS Safety Report 4324169-2 (Version None)
Quarter: 2004Q1

REPORT INFORMATION
  Report Type: 
  Country: None (occurrence: None)
  Receive Date: 20040326
  Receipt Date: 20040105
  Transmission Date: 20041129
  Serious: No
  Sender: FDA-Public Use
  Company Number: US-GLAXOSMITHKLINE-A0491321A

PATIENT
  Age: 32 Year
  Sex: Male

DRUGS (2)
  1. ADVAIR DISKUS 100/50 [Suspect]
     Indication: ASTHMA
     Dosage: 1PUFF TWICE PER DAY
     Route: 055
  2. ALBUTEROL [Concomitant]
     Route: 055

REACTIONS (5)
  - HEART RATE DECREASED [None]
  - INSOMNIA [None]
  - MUSCLE SPASMS [None]
  - ORAL CANDIDIASIS [None]
  - PHARYNGEAL ERYTHEMA [None]
